FAERS Safety Report 20771704 (Version 1)
Quarter: 2022Q2

REPORT INFORMATION
  Report Type: Spontaneous
  Country: CA (occurrence: None)
  Receive Date: 20220430
  Receipt Date: 20220430
  Transmission Date: 20220721
  Serious: Yes (Other)
  Sender: FDA-Public Use
  Company Number: CA-ROCHE-3084200

PATIENT
  Age: 48 Year
  Sex: Female

DRUGS (1)
  1. RITUXIMAB [Suspect]
     Active Substance: RITUXIMAB
     Indication: Rheumatoid arthritis
     Route: 042

REACTIONS (3)
  - Ear infection bacterial [Unknown]
  - Ear pain [Unknown]
  - Hypoacusis [Unknown]
